FAERS Safety Report 4292179-X (Version None)
Quarter: 2004Q1

REPORT INFORMATION
  Report Type: 
  Country: None (occurrence: None)
  Receive Date: 20040211
  Receipt Date: 20031231
  Transmission Date: 20041129
  Serious: No
  Sender: FDA-Public Use
  Company Number: US-GLAXOSMITHKLINE-A0490909A

PATIENT
  Age: 6 Year
  Sex: Female

DRUGS (3)
  1. LAMICTAL [Suspect]
     Dosage: 115MG TWICE PER DAY
     Route: 048
  2. FELBATOL [Concomitant]
     Dates: start: 20030901
  3. TOPAMAX [Concomitant]

REACTIONS (1)
  - CRYING [None]
